FAERS Safety Report 17096067 (Version 1)
Quarter: 2019Q4

REPORT INFORMATION
  Report Type: Spontaneous
  Country: GB (occurrence: GB)
  Receive Date: 20191202
  Receipt Date: 20191202
  Transmission Date: 20200122
  Serious: Yes (Other)
  Sender: FDA-Public Use
  Company Number: GB-SA-2019SA327338

PATIENT
  Age: 66 Year
  Sex: Male

DRUGS (1)
  1. TAMSULOSIN HYDROCHLORIDE. [Suspect]
     Active Substance: TAMSULOSIN HYDROCHLORIDE
     Dosage: UNK, UNK
     Route: 065

REACTIONS (1)
  - Erectile dysfunction [Recovered/Resolved]
